FAERS Safety Report 23788437 (Version 1)
Quarter: 2024Q2

REPORT INFORMATION
  Report Type: Report from Study
  Country: MX (occurrence: None)
  Receive Date: 20240426
  Receipt Date: 20240426
  Transmission Date: 20240716
  Serious: Yes (Other)
  Sender: FDA-Public Use
  Company Number: 2024A096082

PATIENT
  Age: 693 Month
  Sex: Female

DRUGS (1)
  1. LYNPARZA [Suspect]
     Active Substance: OLAPARIB
     Indication: Ovarian cancer
     Route: 048
     Dates: start: 202402, end: 202403

REACTIONS (9)
  - Gait disturbance [Not Recovered/Not Resolved]
  - Spinal disorder [Not Recovered/Not Resolved]
  - Fall [Recovered/Resolved with Sequelae]
  - Reflux gastritis [Recovering/Resolving]
  - Discomfort [Unknown]
  - Hypoaesthesia [Unknown]
  - Cardiovascular disorder [Unknown]
  - Anorectal discomfort [Recovered/Resolved]
  - Overdose [Recovered/Resolved]

NARRATIVE: CASE EVENT DATE: 20240201
